FAERS Safety Report 5012276-0 (Version None)
Quarter: 2006Q2

REPORT INFORMATION
  Report Type: 
  Country: None (occurrence: None)
  Receive Date: 20060524
  Receipt Date: 20060516
  Transmission Date: 20061013
  Serious: Yes (Hospitalization)
  Sender: FDA-Public Use
  Company Number: USA-2006-0024240

PATIENT
  Age: 1 Year
  Sex: Male

DRUGS (5)
  1. CEFDITOREN PIVOXIL [Suspect]
     Indication: OTITIS MEDIA
     Dosage: SEE TEXT, ORAL
     Route: 048
     Dates: start: 20051210, end: 20060407
  2. FLOMOX               (CEFCAPENE PIVOXIL HYDROCHLORIDE) [Suspect]
     Indication: OTITIS MEDIA
     Dosage: 120 MG, SEE TEXT, ORAL
     Route: 048
     Dates: start: 20051221, end: 20060307
  3. CEFMETAZON          (CEFMETAZOLE SODIUM) [Concomitant]
  4. CLAVAMOX                (CLAVULANATE POTASSIUM, AMOXICILLIN TRIHYDRATE [Concomitant]
  5. FAROM [Concomitant]

REACTIONS (7)
  - AMMONIA INCREASED [None]
  - BLOOD GLUCOSE DECREASED [None]
  - CARNITINE DECREASED [None]
  - CONVULSION [None]
  - DEPRESSED LEVEL OF CONSCIOUSNESS [None]
  - SOMNOLENCE [None]
  - STREPTOCOCCAL INFECTION [None]
